FAERS Safety Report 6971937-4 (Version None)
Quarter: 2010Q3

REPORT INFORMATION
  Report Type: 
  Country: None (occurrence: None)
  Receive Date: 20100908
  Receipt Date: 20100908
  Transmission Date: 20110219
  Serious: No
  Sender: FDA-Public Use
  Company Number: None

PATIENT
  Age: 53 Year
  Sex: Female
  Weight: 81.6475 kg

DRUGS (1)
  1. EMPATIC UNKNOWN OREXIGEN [Suspect]
     Indication: WEIGHT DECREASED
     Dosage: 4 TABLETS PER DAY PO
     Route: 048
     Dates: start: 20060824, end: 20060905

REACTIONS (3)
  - DEAFNESS [None]
  - NERVE INJURY [None]
  - TINNITUS [None]
